FAERS Safety Report 11476586 (Version 5)
Quarter: 2015Q3

REPORT INFORMATION
  Report Type: Other
  Country: None (occurrence: RU)
  Receive Date: 20150909
  Receipt Date: 20150930
  Transmission Date: 20151125
  Serious: Yes (Hospitalization)
  Sender: FDA-Public Use
  Company Number: RU-MERCK KGAA-1041742

PATIENT

DRUGS (1)
  1. NOVOTHYROX [Suspect]
     Active Substance: LEVOTHYROXINE SODIUM

REACTIONS (10)
  - Maternal exposure during pregnancy [None]
  - Decreased appetite [None]
  - Ketonuria [None]
  - Polyhydramnios [None]
  - Protein total decreased [None]
  - Anaemia [None]
  - Normal newborn [None]
  - Proteinuria [None]
  - Respiratory disorder [None]
  - Asthenia [None]
